FAERS Safety Report 5452796-8 (Version None)
Quarter: 2007Q3

REPORT INFORMATION
  Report Type: 
  Country: None (occurrence: None)
  Receive Date: 20070914
  Receipt Date: 20070907
  Transmission Date: 20080115
  Serious: Yes (Hospitalization, Other)
  Sender: FDA-Public Use
  Company Number: DE-PURDUE-DEU_2007_0003618

PATIENT
  Age: 37 Year
  Sex: Female

DRUGS (2)
  1. MST 30 MG MUNDIPHARMA [Suspect]
     Indication: PAIN
     Dosage: 30 MG, BID
     Route: 048
  2. VIGIL [Concomitant]

REACTIONS (3)
  - COUGH [None]
  - MUNCHAUSEN'S SYNDROME [None]
  - SYNCOPE [None]
